FAERS Safety Report 8887364 (Version 2)
Quarter: 2012Q4

REPORT INFORMATION
  Report Type: 
  Country: GB (occurrence: GB)
  Receive Date: 20121101
  Receipt Date: 20121218
  Transmission Date: 20130627
  Serious: No
  Sender: FDA-Public Use
  Company Number: GB-ELI_LILLY_AND_COMPANY-GB201210002566

PATIENT
  Age: 58 Year
  Sex: Male
  Weight: 119 kg

DRUGS (11)
  1. BYETTA [Suspect]
     Indication: TYPE 2 DIABETES MELLITUS
     Dosage: UNK, unknown
     Route: 058
     Dates: start: 20120904, end: 20120917
  2. WARFARIN [Concomitant]
  3. METFORMIN [Concomitant]
     Dosage: UNK, qd
  4. DOXAZOSIN [Concomitant]
     Dosage: 2 mg, qd
  5. RAMIPRIL [Concomitant]
     Dosage: 10 mg, qd
  6. QUININE SULPHATE [Concomitant]
     Dosage: 300 mg, each evening
  7. HUMULIN                            /00806401/ [Concomitant]
  8. OMEPRAZOLE [Concomitant]
     Dosage: 20 mg, qd
  9. LEVOTHYROXINE [Concomitant]
     Dosage: 100 mg, qd
  10. SALMETEROL [Concomitant]
     Dosage: 2 DF, qd
  11. CO DYDRAMOL [Concomitant]

REACTIONS (1)
  - Drug hypersensitivity [Recovered/Resolved]
